FAERS Safety Report 10369787 (Version 1)
Quarter: 2014Q3

REPORT INFORMATION
  Report Type: Spontaneous
  Country: US (occurrence: US)
  Receive Date: 20140808
  Receipt Date: 20140808
  Transmission Date: 20150326
  Serious: Yes (Other)
  Sender: FDA-Public Use
  Company Number: US-AMGEN-USASP2014058624

PATIENT
  Sex: Female
  Weight: 41.72 kg

DRUGS (1)
  1. PROLIA [Suspect]
     Active Substance: DENOSUMAB
     Indication: OSTEOPOROSIS POSTMENOPAUSAL
     Route: 065

REACTIONS (5)
  - Back pain [Unknown]
  - Surgery [Unknown]
  - Asthenia [Unknown]
  - Somnolence [Unknown]
  - Vitamin D deficiency [Unknown]
